FAERS Safety Report 5004435-8 (Version None)
Quarter: 2006Q2

REPORT INFORMATION
  Report Type: 
  Country: None (occurrence: None)
  Receive Date: 20060517
  Receipt Date: 20060318
  Transmission Date: 20061013
  Serious: Yes (Hospitalization)
  Sender: FDA-Public Use
  Company Number: FR-ROCHE-444372

PATIENT
  Age: 29 Year
  Sex: Female
  Weight: 56 kg

DRUGS (5)
  1. ROCEPHIN [Suspect]
     Indication: PNEUMONIA
     Dosage: FORM REPORTED AS INTRAMUSCULAR INJECTION AMPULE.
     Route: 042
     Dates: start: 20060317, end: 20060317
  2. MEDROL [Concomitant]
  3. DIANE 35 [Concomitant]
     Route: 048
  4. AERIUS [Concomitant]
     Route: 048
  5. MOPRAL [Concomitant]
     Route: 048
     Dates: start: 20010615

REACTIONS (4)
  - ANXIETY [None]
  - CONVULSION [None]
  - INCORRECT ROUTE OF DRUG ADMINISTRATION [None]
  - PYREXIA [None]
